FAERS Safety Report 21365552 (Version 1)
Quarter: 2022Q3

REPORT INFORMATION
  Report Type: Spontaneous
  Country: US (occurrence: US)
  Receive Date: 20220922
  Receipt Date: 20220922
  Transmission Date: 20221027
  Serious: No
  Sender: FDA-Public Use
  Company Number: US-BRISTOL-MYERS SQUIBB COMPANY-2022-110365

PATIENT
  Age: 42 Year
  Sex: Female

DRUGS (1)
  1. ORENCIA [Suspect]
     Active Substance: ABATACEPT
     Indication: Product used for unknown indication
     Dosage: DOSE : 1 SYRINGE;     FREQ : ONCE A WEEK
     Route: 058

REACTIONS (2)
  - Drug ineffective [Unknown]
  - Oral discomfort [Unknown]

NARRATIVE: CASE EVENT DATE: 20220701
